FAERS Safety Report 5702398-0 (Version None)
Quarter: 2008Q2

REPORT INFORMATION
  Report Type: 
  Country: None (occurrence: None)
  Receive Date: 20080411
  Receipt Date: 20080405
  Transmission Date: 20081010
  Serious: Yes (Hospitalization, Other)
  Sender: FDA-Public Use
  Company Number: US-ALLERGAN-0804065US

PATIENT
  Sex: Female

DRUGS (1)
  1. BOTOX [Suspect]
     Indication: DRUG USE FOR UNKNOWN INDICATION
     Dosage: UNK, SINGLE
     Route: 030
     Dates: start: 20080110, end: 20080110

REACTIONS (19)
  - BURNING SENSATION [None]
  - DYSPLASIA [None]
  - FEELING HOT [None]
  - GINGIVAL HYPERTROPHY [None]
  - LOSS OF CONSCIOUSNESS [None]
  - MALAISE [None]
  - MENTAL DISORDER [None]
  - MUSCULAR WEAKNESS [None]
  - OEDEMA MOUTH [None]
  - OROPHARYNGEAL BLISTERING [None]
  - PAIN [None]
  - PANIC ATTACK [None]
  - PYREXIA [None]
  - SPEECH DISORDER [None]
  - SWELLING FACE [None]
  - THROAT TIGHTNESS [None]
  - TONGUE PARALYSIS [None]
  - VIITH NERVE INJURY [None]
  - VISION BLURRED [None]
